FAERS Safety Report 6420490-2 (Version None)
Quarter: 2009Q4

REPORT INFORMATION
  Report Type: 
  Country: None (occurrence: None)
  Receive Date: 20091021
  Receipt Date: 20090723
  Transmission Date: 20100525
  Serious: No
  Sender: FDA-Public Use
  Company Number: SPV1-2009-01520

PATIENT
  Age: 15 Year
  Sex: Female

DRUGS (3)
  1. VYVANSE [Suspect]
  2. WELLBUTRIN [Suspect]
  3. MOTRIN [Suspect]

REACTIONS (2)
  - CRIME [None]
  - DRUG DIVERSION [None]
